FAERS Safety Report 7898816-2 (Version None)
Quarter: 2011Q4

REPORT INFORMATION
  Report Type: 
  Country: None (occurrence: None)
  Receive Date: 20111107
  Receipt Date: 20111024
  Transmission Date: 20120403
  Serious: Yes (Other)
  Sender: FDA-Public Use
  Company Number: US-ELI_LILLY_AND_COMPANY-US201110008175

PATIENT
  Sex: Female

DRUGS (1)
  1. GLUCAGON [Suspect]
     Indication: HYPOGLYCAEMIA
     Dosage: UNK UNK, AS NEEDED

REACTIONS (2)
  - MATERNAL EXPOSURE DURING PREGNANCY [None]
  - ABORTION SPONTANEOUS [None]
